FAERS Safety Report 7978169-1 (Version None)
Quarter: 2011Q4

REPORT INFORMATION
  Report Type: 
  Country: None (occurrence: None)
  Receive Date: 20111214
  Receipt Date: 20111204
  Transmission Date: 20120403
  Serious: Yes (Hospitalization)
  Sender: FDA-Public Use
  Company Number: JP-ELI_LILLY_AND_COMPANY-JP201110003700

PATIENT
  Age: 75 Year
  Sex: Female

DRUGS (3)
  1. FORTEO [Suspect]
     Dosage: UNK
     Route: 058
     Dates: start: 20111101
  2. FORTEO [Suspect]
     Dosage: UNK
     Route: 058
     Dates: end: 20110929
  3. FORTEO [Suspect]
     Dosage: UNK
     Route: 058
     Dates: start: 20110101, end: 20111122

REACTIONS (5)
  - PYREXIA [None]
  - PANCREATIC DISORDER [None]
  - THIRST [None]
  - HYPOAESTHESIA [None]
  - MALAISE [None]
